FAERS Safety Report 13706376 (Version 3)
Quarter: 2017Q3

REPORT INFORMATION
  Report Type: Spontaneous
  Country: FR (occurrence: FR)
  Receive Date: 20170630
  Receipt Date: 20170928
  Transmission Date: 20171127
  Serious: Yes (Life-Threatening, Hospitalization, Other)
  Sender: FDA-Public Use
  Company Number: FR-GLAXOSMITHKLINE-FR2017GSK099606

PATIENT
  Age: 3 Year
  Sex: Female
  Weight: 21 kg

DRUGS (4)
  1. URBANYL [Concomitant]
     Active Substance: CLOBAZAM
     Indication: EPILEPSY
     Dosage: UNK
     Route: 048
  2. LAMICTAL [Suspect]
     Active Substance: LAMOTRIGINE
     Dosage: 5 MG, BID
     Dates: start: 201706, end: 20170621
  3. MICROPAKINE [Concomitant]
     Active Substance: VALPROIC ACID
     Indication: EPILEPSY
     Dosage: 250 MG, BID
     Route: 048
     Dates: end: 20170621
  4. LAMICTAL [Suspect]
     Active Substance: LAMOTRIGINE
     Indication: EPILEPSY
     Dosage: UNK
     Route: 048
     Dates: start: 20170530, end: 20170621

REACTIONS (13)
  - Inflammation [Unknown]
  - Kawasaki^s disease [Recovered/Resolved]
  - Strawberry tongue [Unknown]
  - Erythema [Unknown]
  - Conjunctivitis [Recovered/Resolved]
  - Pyrexia [Recovered/Resolved]
  - Rash maculo-papular [Recovered/Resolved]
  - Face oedema [Not Recovered/Not Resolved]
  - Oedema peripheral [Not Recovered/Not Resolved]
  - Coronary artery dilatation [Unknown]
  - Lymphadenopathy [Unknown]
  - Cheilitis [Recovered/Resolved]
  - Pharyngitis [Unknown]

NARRATIVE: CASE EVENT DATE: 201706
